FAERS Safety Report 7708904-9 (Version None)
Quarter: 2011Q3

REPORT INFORMATION
  Report Type: 
  Country: None (occurrence: None)
  Receive Date: 20110819
  Receipt Date: 20110816
  Transmission Date: 20111222
  Serious: Yes (Death)
  Sender: FDA-Public Use
  Company Number: TRP_07896_2011

PATIENT
  Age: 6 Year
  Sex: Male

DRUGS (3)
  1. CHEMOTHERAPEUTICS [Concomitant]
  2. AMPHOTERICIN B [Suspect]
     Indication: ZYGOMYCOSIS
     Dosage: (DF)
  3. CYCLOSPORINE [Concomitant]

REACTIONS (7)
  - HYPERKALAEMIA [None]
  - IMPAIRED HEALING [None]
  - MULTI-ORGAN FAILURE [None]
  - SEPTIC SHOCK [None]
  - RENAL IMPAIRMENT [None]
  - FEBRILE NEUTROPENIA [None]
  - NO THERAPEUTIC RESPONSE [None]
